FAERS Safety Report 4549897-5 (Version None)
Quarter: 2004Q4

REPORT INFORMATION
  Report Type: 
  Country: None (occurrence: None)
  Receive Date: 20041228
  Receipt Date: 20041110
  Transmission Date: 20050328
  Serious: Yes (Other)
  Sender: FDA-Public Use
  Company Number: WAES 0411USA01999

PATIENT
  Age: 49 Year
  Sex: Male

DRUGS (3)
  1. INVANZ [Suspect]
     Dosage: I GM/DAILY/IV
     Route: 042
     Dates: start: 20041110, end: 20041110
  2. PRIMAXIN [Concomitant]
  3. TYLENOL [Concomitant]

REACTIONS (1)
  - ANAPHYLACTIC REACTION [None]
